FAERS Safety Report 9490000 (Version 2)
Quarter: 2013Q4

REPORT INFORMATION
  Report Type: Spontaneous
  Country: US (occurrence: US)
  Receive Date: 20130829
  Receipt Date: 20131007
  Transmission Date: 20140711
  Serious: Yes (Other)
  Sender: FDA-Public Use
  Company Number: US-SANOFI-AVENTIS-2013SA086133

PATIENT
  Age: 77 Year
  Sex: Male
  Weight: 77 kg

DRUGS (5)
  1. JEVTANA [Suspect]
     Indication: PROSTATE CANCER
     Route: 065
     Dates: start: 20130212, end: 20130806
  2. PREDNISONE [Concomitant]
     Dosage: 10
  3. LIPITOR [Concomitant]
     Dosage: DOSE:10
  4. PEPCID [Concomitant]
     Dosage: DOSE:20
  5. PERCOCET [Concomitant]
     Indication: PAIN
     Dosage: DOSE:40

REACTIONS (2)
  - Interstitial lung disease [Not Recovered/Not Resolved]
  - Dyspnoea [Not Recovered/Not Resolved]
